FAERS Safety Report 17126991 (Version 6)
Quarter: 2021Q1

REPORT INFORMATION
  Report Type: Report from Study
  Country: US (occurrence: US)
  Receive Date: 20191209
  Receipt Date: 20210304
  Transmission Date: 20210419
  Serious: No
  Sender: FDA-Public Use
  Company Number: NVSC2019US062706

PATIENT
  Age: 46 Year
  Sex: Male

DRUGS (6)
  1. ENTRESTO [Suspect]
     Active Substance: SACUBITRIL\VALSARTAN
     Indication: CARDIAC FAILURE CHRONIC
     Dosage: 1 DF, TID
     Route: 048
  2. LASIX [Concomitant]
     Active Substance: FUROSEMIDE
     Indication: PRODUCT USED FOR UNKNOWN INDICATION
     Route: 065
  3. ENTRESTO [Suspect]
     Active Substance: SACUBITRIL\VALSARTAN
     Dosage: 1.5 DF, BID
     Route: 048
  4. ENTRESTO [Suspect]
     Active Substance: SACUBITRIL\VALSARTAN
     Dosage: 100 MG, BID (49/51 MG TWICE DAILY)
     Route: 065
  5. ENTRESTO [Suspect]
     Active Substance: SACUBITRIL\VALSARTAN
     Dosage: 100 MG, BID (49.51 MG, 1/2 TABLET TWICE DAILY
     Route: 048
     Dates: start: 201909
  6. ENTRESTO [Suspect]
     Active Substance: SACUBITRIL\VALSARTAN
     Dosage: 100 MG, TID (49 MG SACUBITRIL AND 51 MG VALSARTAN)
     Route: 048
     Dates: start: 201909

REACTIONS (17)
  - Irregular sleep wake rhythm disorder [Not Recovered/Not Resolved]
  - Dehydration [Unknown]
  - Skin burning sensation [Recovering/Resolving]
  - Pruritus [Recovering/Resolving]
  - Wrong technique in product usage process [Not Recovered/Not Resolved]
  - Therapeutic response unexpected [Recovering/Resolving]
  - Malaise [Unknown]
  - Fatigue [Recovered/Resolved]
  - Drug ineffective [Unknown]
  - Flushing [Recovering/Resolving]
  - Blood sodium decreased [Unknown]
  - Hypersensitivity [Not Recovered/Not Resolved]
  - Rhinorrhoea [Not Recovered/Not Resolved]
  - Burning sensation [Recovering/Resolving]
  - Heart rate increased [Unknown]
  - Inappropriate schedule of product administration [Unknown]
  - Product prescribing error [Not Recovered/Not Resolved]

NARRATIVE: CASE EVENT DATE: 201909
